FAERS Safety Report 5202013-9 (Version None)
Quarter: 2007Q1

REPORT INFORMATION
  Report Type: 
  Country: None (occurrence: None)
  Receive Date: 20070109
  Receipt Date: 20070102
  Transmission Date: 20070707
  Serious: Yes (Other)
  Sender: FDA-Public Use
  Company Number: US-JNJFOC-20070100786

PATIENT
  Sex: Female
  Weight: 86.18 kg

DRUGS (3)
  1. CONCERTA [Suspect]
     Route: 048
  2. CONCERTA [Suspect]
     Route: 048
  3. CONCERTA [Suspect]
     Indication: ATTENTION DEFICIT/HYPERACTIVITY DISORDER
     Route: 048

REACTIONS (8)
  - AGGRESSION [None]
  - ANGER [None]
  - COUGH [None]
  - HEADACHE [None]
  - LOSS OF LIBIDO [None]
  - RESPIRATORY DISORDER [None]
  - SOMNOLENCE [None]
  - SUICIDAL IDEATION [None]
